FAERS Safety Report 6145681-X (Version None)
Quarter: 2009Q2

REPORT INFORMATION
  Report Type: 
  Country: None (occurrence: None)
  Receive Date: 20090407
  Receipt Date: 20090331
  Transmission Date: 20091009
  Serious: Yes (Other)
  Sender: FDA-Public Use
  Company Number: CA-BRISTOL-MYERS SQUIBB COMPANY-14574065

PATIENT
  Age: 14 Month
  Sex: Male

DRUGS (1)
  1. CEFZIL [Suspect]
     Indication: PNEUMONIA
     Route: 048
     Dates: start: 20090307, end: 20090315

REACTIONS (1)
  - BURNS SECOND DEGREE [None]
